FAERS Safety Report 10650939 (Version 2)
Quarter: 2014Q4

REPORT INFORMATION
  Report Type: Report from Study
  Country: US (occurrence: US)
  Receive Date: 20141215
  Receipt Date: 20141215
  Transmission Date: 20150529
  Serious: Yes (Hospitalization)
  Sender: FDA-Public Use
  Company Number: US-009507513-1410USA013909

PATIENT
  Age: 61 Year
  Sex: Female
  Weight: 64.4 kg

DRUGS (4)
  1. AVASTIN [Suspect]
     Active Substance: BEVACIZUMAB
     Dosage: 10 MG/KG, Q2WK
     Dates: start: 20141008
  2. LISINOPRIL. [Concomitant]
     Active Substance: LISINOPRIL
     Dosage: 10 MG, QD
     Route: 065
  3. ATIVAN [Concomitant]
     Active Substance: LORAZEPAM
     Dosage: 2 MG, EVERY 8 HOURS AS NEEDED
     Route: 065
  4. VORINOSTAT [Suspect]
     Active Substance: VORINOSTAT
     Indication: GLIOBLASTOMA
     Dosage: DOSE: 100 MG TAKEN ON DAYS 1-7 AND 15-21 OF 28 DAY CYCLE
     Route: 048
     Dates: start: 20141008, end: 20141014

REACTIONS (1)
  - Enterocolitis [Unknown]

NARRATIVE: CASE EVENT DATE: 20141013
